FAERS Safety Report 10314031 (Version 2)
Quarter: 2016Q2

REPORT INFORMATION
  Report Type: Spontaneous
  Country: GB (occurrence: GB)
  Receive Date: 20140718
  Receipt Date: 20160607
  Transmission Date: 20160815
  Serious: Yes (Hospitalization, Other)
  Sender: FDA-Public Use
  Company Number: GB-ACTAVIS-2014-15402

PATIENT
  Age: 86 Year
  Sex: Male

DRUGS (2)
  1. DONEPEZIL (UNKNOWN) [Suspect]
     Active Substance: DONEPEZIL
     Dosage: 5 MG, DAILY
     Route: 048
  2. DONEPEZIL (UNKNOWN) [Suspect]
     Active Substance: DONEPEZIL
     Indication: DEMENTIA ALZHEIMER^S TYPE
     Dosage: 10 MG, DAILY
     Route: 048
     Dates: start: 20140328

REACTIONS (3)
  - Duodenal ulcer [Recovered/Resolved]
  - Upper gastrointestinal haemorrhage [Recovered/Resolved]
  - Shock [Recovered/Resolved]

NARRATIVE: CASE EVENT DATE: 20140603
